FAERS Safety Report 6627669-5 (Version None)
Quarter: 2010Q1

REPORT INFORMATION
  Report Type: 
  Country: None (occurrence: None)
  Receive Date: 20100311
  Receipt Date: 20100301
  Transmission Date: 20100710
  Serious: Yes (Hospitalization)
  Sender: FDA-Public Use
  Company Number: US-BRISTOL-MYERS SQUIBB COMPANY-14997373

PATIENT
  Age: 68 Year
  Sex: Male

DRUGS (4)
  1. WARFARIN SODIUM [Suspect]
  2. HEPARIN SODIUM [Suspect]
     Route: 042
  3. ANTIBIOTICS [Suspect]
  4. VITAMIN K TAB [Concomitant]

REACTIONS (3)
  - RENAL FAILURE ACUTE [None]
  - SKIN NECROSIS [None]
  - THROMBOCYTOPENIA [None]
